FAERS Safety Report 24243207 (Version 1)
Quarter: 2024Q3

REPORT INFORMATION
  Report Type: Spontaneous
  Country: US (occurrence: US)
  Receive Date: 20240823
  Receipt Date: 20240823
  Transmission Date: 20241017
  Serious: Yes (Other)
  Sender: AMGEN
  Company Number: US-AMGEN-USASP2024164315

PATIENT
  Age: 95 Year
  Sex: Female

DRUGS (1)
  1. PREDNISONE [Suspect]
     Active Substance: PREDNISONE
     Indication: Ocular pemphigoid
     Dosage: UNK
     Route: 065

REACTIONS (5)
  - Sebaceous carcinoma [Unknown]
  - Corneal opacity [Unknown]
  - Off label use [Unknown]
  - Visual acuity reduced [Unknown]
  - Eye inflammation [Unknown]
